FAERS Safety Report 13916398 (Version 2)
Quarter: 2017Q3

REPORT INFORMATION
  Report Type: Spontaneous
  Country: US (occurrence: US)
  Receive Date: 20170829
  Receipt Date: 20170830
  Transmission Date: 20171127
  Serious: Yes (Other)
  Sender: FDA-Public Use
  Company Number: US-TEVA-800048USA

PATIENT
  Sex: Male
  Weight: 131.66 kg

DRUGS (2)
  1. AZILECT [Suspect]
     Active Substance: RASAGILINE MESYLATE
     Indication: PARKINSON^S DISEASE
     Route: 065
     Dates: start: 201103
  2. CARBIDOPA-LEVADOPA [Concomitant]

REACTIONS (4)
  - Cardiac operation [Unknown]
  - Panic attack [Unknown]
  - Therapeutic response unexpected [Unknown]
  - Weight decreased [Unknown]
